FAERS Safety Report 5573603-9 (Version None)
Quarter: 2007Q4

REPORT INFORMATION
  Report Type: 
  Country: None (occurrence: None)
  Receive Date: 20071226
  Receipt Date: 20071217
  Transmission Date: 20080405
  Serious: Yes (Other)
  Sender: FDA-Public Use
  Company Number: US-BAYER-US-2007-039411

PATIENT
  Age: 22 Year
  Sex: Female
  Weight: 64 kg

DRUGS (4)
  1. MIRENA [Suspect]
     Indication: CONTRACEPTION
     Route: 015
     Dates: start: 20060725, end: 20071017
  2. LORTAB [Concomitant]
     Indication: ABDOMINAL PAIN
     Route: 048
     Dates: start: 20071010
  3. TRAZODONE HCL [Concomitant]
  4. CELEXA [Concomitant]

REACTIONS (5)
  - ABDOMINAL PAIN [None]
  - ABORTION SPONTANEOUS [None]
  - GENITAL HAEMORRHAGE [None]
  - PREGNANCY WITH CONTRACEPTIVE DEVICE [None]
  - UTERINE PERFORATION [None]
